FAERS Safety Report 25447874 (Version 1)
Quarter: 2025Q2

REPORT INFORMATION
  Report Type: Spontaneous
  Country: US (occurrence: None)
  Receive Date: 20250617
  Receipt Date: 20250617
  Transmission Date: 20250716
  Serious: No
  Sender: INCYTE
  Company Number: US-INCYTE CORPORATION-2025IN006234

PATIENT
  Age: 61 Year

DRUGS (1)
  1. JAKAFI [Suspect]
     Active Substance: RUXOLITINIB
     Indication: Diffuse large B-cell lymphoma
     Dosage: 5 MILLIGRAM, BID

REACTIONS (1)
  - Off label use [Unknown]
